FAERS Safety Report 8623976 (Version 5)
Quarter: 2013Q1

REPORT INFORMATION
  Report Type: Spontaneous
  Country: US (occurrence: US)
  Receive Date: 20120620
  Receipt Date: 20130325
  Transmission Date: 20140127
  Serious: Yes (Hospitalization)
  Sender: FDA-Public Use
  Company Number: US-ASTRAZENECA-2012SE39057

PATIENT
  Age: 55 Year
  Sex: Female

DRUGS (4)
  1. NEXIUM [Suspect]
     Route: 048
  2. RHINOCORT AQUA [Suspect]
     Route: 045
  3. SYMBICORT PMDI [Suspect]
     Indication: ASTHMA
     Dosage: UNKNOWN FREQUENCY
     Route: 055
  4. PULMICORT RESPULES [Suspect]
     Route: 055

REACTIONS (11)
  - Fall [Unknown]
  - Foot fracture [Unknown]
  - Ligament sprain [Unknown]
  - Gastric disorder [Unknown]
  - Asthma [Unknown]
  - Malaise [Unknown]
  - Dysphagia [Unknown]
  - Malaise [Unknown]
  - Pneumonia [Unknown]
  - Drug dose omission [Unknown]
  - Off label use [Unknown]
